FAERS Safety Report 9741154 (Version 1)
Quarter: 2013Q4

REPORT INFORMATION
  Report Type: Spontaneous
  Country: US (occurrence: US)
  Receive Date: 20131209
  Receipt Date: 20131209
  Transmission Date: 20140711
  Serious: No
  Sender: FDA-Public Use
  Company Number: US-VERTEX PHARMACEUTICALS INC-2013-011598

PATIENT
  Sex: Male
  Weight: 94.79 kg

DRUGS (3)
  1. INCIVEK [Suspect]
     Indication: HEPATITIS C
     Dosage: 2 DF, TID
     Dates: start: 20131114, end: 20131120
  2. RIBAVIRIN [Suspect]
     Indication: HEPATITIS C
     Dosage: UNK, BID
     Dates: start: 20131114, end: 20131120
  3. PEGINTRON [Suspect]
     Indication: HEPATITIS C
     Dosage: 150 ?G, QW
     Route: 058
     Dates: start: 20131114, end: 20131120

REACTIONS (3)
  - Swelling [Unknown]
  - Rash erythematous [Unknown]
  - Pruritus [Unknown]
